FAERS Safety Report 13930233 (Version 3)
Quarter: 2018Q4

REPORT INFORMATION
  Report Type: Report from Study
  Country: None (occurrence: CA)
  Receive Date: 20170901
  Receipt Date: 20181005
  Transmission Date: 20190204
  Serious: Yes (Life-Threatening, Hospitalization, Other)
  Sender: FDA-Public Use
  Company Number: CA-ABBVIE-17P-028-1900769-00

PATIENT
  Sex: Male

DRUGS (9)
  1. RITUXIMAB. [Suspect]
     Active Substance: RITUXIMAB
     Indication: PRODUCT USED FOR UNKNOWN INDICATION
     Dosage: INFUSION RATE REDUCED: 8H
     Route: 065
  2. VENCLEXTA [Suspect]
     Active Substance: VENETOCLAX
     Dosage: FOURTH DAY
     Route: 048
     Dates: start: 2017, end: 2017
  3. VENCLEXTA [Suspect]
     Active Substance: VENETOCLAX
     Indication: CHRONIC LYMPHOCYTIC LEUKAEMIA
     Dosage: STARTER PACK
     Route: 048
     Dates: start: 20170227, end: 2017
  4. VENCLEXTA [Suspect]
     Active Substance: VENETOCLAX
     Dosage: FIRST THREE DAYS
     Route: 048
     Dates: start: 2017, end: 2017
  5. VENCLEXTA [Suspect]
     Active Substance: VENETOCLAX
     Dosage: FIFTH DAY
     Route: 048
     Dates: start: 2017, end: 2017
  6. VENCLEXTA [Suspect]
     Active Substance: VENETOCLAX
     Route: 048
     Dates: start: 2017
  7. CIALIS [Concomitant]
     Active Substance: TADALAFIL
     Indication: PRODUCT USED FOR UNKNOWN INDICATION
     Dosage: 5 MG (HALF A DAY)
  8. VITAMINE D [Concomitant]
     Indication: PRODUCT USED FOR UNKNOWN INDICATION
     Dosage: SOMETIMES TWICE A DAY
  9. VENCLEXTA [Suspect]
     Active Substance: VENETOCLAX
     Route: 048
     Dates: start: 2017, end: 2017

REACTIONS (12)
  - Depressed level of consciousness [Unknown]
  - Urticaria [Unknown]
  - Respiratory disorder [Unknown]
  - Hospitalisation [Unknown]
  - Blood count abnormal [Recovered/Resolved]
  - White blood cell count decreased [Recovered/Resolved]
  - Chronic lymphocytic leukaemia recurrent [Recovered/Resolved]
  - General physical health deterioration [Recovered/Resolved]
  - Drug resistance [Recovered/Resolved]
  - Malaise [Unknown]
  - Chronic lymphocytic leukaemia recurrent [Unknown]
  - Lymphadenopathy [Recovered/Resolved]

NARRATIVE: CASE EVENT DATE: 2017
